FAERS Safety Report 5733572-5 (Version None)
Quarter: 2008Q2

REPORT INFORMATION
  Report Type: 
  Country: None (occurrence: None)
  Receive Date: 20080509
  Receipt Date: 20080509
  Transmission Date: 20081010
  Serious: Yes (Hospitalization, Other)
  Sender: FDA-Public Use
  Company Number: None

PATIENT
  Age: 6 Year
  Sex: Male
  Weight: 20.8655 kg

DRUGS (3)
  1. HEPARIN [Suspect]
     Indication: ANTIBIOTIC THERAPY
     Dosage: 5ML TID X10DAYS IV CATH
     Route: 042
     Dates: start: 20080117, end: 20080127
  2. HEPARIN [Suspect]
     Indication: SEPSIS
     Dosage: 5ML TID X10DAYS IV CATH
     Route: 042
     Dates: start: 20080117, end: 20080127
  3. HEPARIN [Suspect]

REACTIONS (7)
  - ABDOMINAL PAIN [None]
  - BLOOD PRESSURE DECREASED [None]
  - DIARRHOEA [None]
  - EYELID OEDEMA [None]
  - HYPERHIDROSIS [None]
  - MALAISE [None]
  - VOMITING [None]
